FAERS Safety Report 5371052-X (Version None)
Quarter: 2007Q2

REPORT INFORMATION
  Report Type: 
  Country: None (occurrence: None)
  Receive Date: 20070626
  Receipt Date: 20070614
  Transmission Date: 20071010
  Serious: Yes (Other)
  Sender: FDA-Public Use
  Company Number: US-PFIZER INC-2007049915

PATIENT
  Sex: Female
  Weight: 77.272 kg

DRUGS (21)
  1. CHANTIX [Suspect]
     Indication: SMOKING CESSATION THERAPY
  2. DEPAKOTE [Concomitant]
  3. SYNTHROID [Concomitant]
  4. VASOTEC [Concomitant]
  5. LASIX [Concomitant]
  6. POTASSIUM ACETATE [Concomitant]
  7. ACETYLSALICYLIC ACID SRT [Concomitant]
  8. MUCINEX [Concomitant]
  9. FENOFIBRATE [Concomitant]
  10. PREDNISONE TAB [Concomitant]
  11. NEXIUM [Concomitant]
  12. LIPITOR [Concomitant]
  13. PROMETRIUM [Concomitant]
     Dosage: FREQ:DAY 1 TO 12
  14. BENADRYL [Concomitant]
     Dosage: FREQ:AS NEEDED
  15. CALCIUM, COMBINATIONS WITH OTHER DRUGS [Concomitant]
  16. ASCORBIC ACID [Concomitant]
  17. XANAX [Concomitant]
     Dosage: FREQ:AS NEEDED
  18. PERCOCET [Concomitant]
  19. ALL OTHER THERAPEUTIC PRODUCTS [Concomitant]
  20. ADVAIR DISKUS 100/50 [Concomitant]
  21. ALBUTEROL [Concomitant]
     Dosage: FREQ:AS NEEDED

REACTIONS (4)
  - ABDOMINAL DISTENSION [None]
  - NAUSEA [None]
  - UPPER RESPIRATORY TRACT INFECTION [None]
  - VOMITING [None]
